FAERS Safety Report 21902242 (Version 2)
Quarter: 2023Q1

REPORT INFORMATION
  Report Type: Spontaneous
  Country: CN (occurrence: None)
  Receive Date: 20230124
  Receipt Date: 20230209
  Transmission Date: 20230418
  Serious: Yes (Hospitalization)
  Sender: FDA-Public Use
  Company Number: 2023A016681

PATIENT
  Age: 63 Year
  Sex: Male

DRUGS (1)
  1. BUDESONIDE\FORMOTEROL\GLYCOPYRRONIUM [Suspect]
     Active Substance: BUDESONIDE\FORMOTEROL\GLYCOPYRRONIUM
     Indication: Chronic obstructive pulmonary disease
     Dosage: TWICE A DAY, TWO INHALATIONS EACH TIME.
     Route: 055

REACTIONS (4)
  - COVID-19 [Unknown]
  - Chest discomfort [Unknown]
  - Respiration abnormal [Unknown]
  - Therapeutic product effect decreased [Unknown]
